FAERS Safety Report 6623178-8 (Version None)
Quarter: 2010Q1

REPORT INFORMATION
  Report Type: 
  Country: None (occurrence: None)
  Receive Date: 20100310
  Receipt Date: 20091218
  Transmission Date: 20100710
  Serious: No
  Sender: FDA-Public Use
  Company Number: US-BIOGENIDEC-2009BI041384

PATIENT
  Age: 46 Year
  Sex: Male
  Weight: 106 kg

DRUGS (2)
  1. AVONEX [Suspect]
     Indication: MULTIPLE SCLEROSIS
     Route: 030
     Dates: start: 20091001
  2. COUMADIN [Concomitant]
     Indication: THROMBOSIS

REACTIONS (5)
  - INFLUENZA LIKE ILLNESS [None]
  - MICTURITION DISORDER [None]
  - MUSCLE SPASMS [None]
  - NEURALGIA [None]
  - TOOTH EXTRACTION [None]
